FAERS Safety Report 13187410 (Version 1)
Quarter: 2017Q1

REPORT INFORMATION
  Report Type: Spontaneous
  Country: US (occurrence: US)
  Receive Date: 20170206
  Receipt Date: 20170206
  Transmission Date: 20170428
  Serious: No
  Sender: FDA-Public Use
  Company Number: US-ASTRAZENECA-2017SE09850

PATIENT
  Age: 65 Year
  Sex: Female
  Weight: 64 kg

DRUGS (7)
  1. PRILOSEC [Suspect]
     Active Substance: OMEPRAZOLE MAGNESIUM
     Indication: GASTROOESOPHAGEAL REFLUX DISEASE
     Route: 048
     Dates: start: 1997
  2. RESCUE INHALER [Concomitant]
     Dosage: UNKNOWN
     Route: 055
  3. FLONASE [Concomitant]
     Active Substance: FLUTICASONE PROPIONATE
     Dosage: UNKNOWN
     Route: 045
  4. PULMICORT FLEXHALER [Suspect]
     Active Substance: BUDESONIDE
     Indication: SINUS DISORDER
     Dosage: UNKNOWN
     Route: 055
  5. PRILOSEC OTC [Suspect]
     Active Substance: OMEPRAZOLE MAGNESIUM
     Indication: GASTROOESOPHAGEAL REFLUX DISEASE
     Dosage: 20.0MG AS REQUIRED
     Route: 048
     Dates: start: 201701
  6. PULMICORT FLEXHALER [Suspect]
     Active Substance: BUDESONIDE
     Indication: WHEEZING
     Dosage: UNKNOWN
     Route: 055
  7. PREDNISONE. [Concomitant]
     Active Substance: PREDNISONE
     Dosage: UNKNOWN

REACTIONS (9)
  - Pain in extremity [Recovering/Resolving]
  - Onychoclasis [Recovering/Resolving]
  - Intentional product misuse [Unknown]
  - Product use issue [Unknown]
  - Sinus disorder [Not Recovered/Not Resolved]
  - Body height decreased [Unknown]
  - Wheezing [Not Recovered/Not Resolved]
  - Off label use [Unknown]
  - Upper-airway cough syndrome [Not Recovered/Not Resolved]

NARRATIVE: CASE EVENT DATE: 2011
